FAERS Safety Report 4676637-1 (Version None)
Quarter: 2005Q2

REPORT INFORMATION
  Report Type: 
  Country: None (occurrence: None)
  Receive Date: 20050526
  Receipt Date: 20050516
  Transmission Date: 20051028
  Serious: Yes (Disabling)
  Sender: FDA-Public Use
  Company Number: 2005065382

PATIENT
  Age: 60 Year
  Sex: Female
  Weight: 43 kg

DRUGS (4)
  1. LIPITOR [Suspect]
     Indication: BLOOD CHOLESTEROL INCREASED
     Dosage: 40 MG, ORAL
     Route: 048
     Dates: start: 20041001
  2. ONE-ALPHA (ALFACALCIDOL) [Concomitant]
  3. TEGRETOL [Concomitant]
  4. FOSAMAX [Concomitant]

REACTIONS (1)
  - HALITOSIS [None]
